FAERS Safety Report 6182985-9 (Version None)
Quarter: 2009Q2

REPORT INFORMATION
  Report Type: 
  Country: None (occurrence: None)
  Receive Date: 20090507
  Receipt Date: 20090504
  Transmission Date: 20091009
  Serious: Yes (Life-Threatening, Hospitalization, Disabling)
  Sender: FDA-Public Use
  Company Number: PHEH2009US03767

PATIENT
  Age: 68 Year
  Sex: Female

DRUGS (3)
  1. RECLAST [Suspect]
     Dosage: 5 MG 1X YR
  2. LIPITOR [Concomitant]
  3. MORPHINE [Concomitant]

REACTIONS (8)
  - ABASIA [None]
  - ASTHENIA [None]
  - CARDIAC ARREST [None]
  - DIALYSIS [None]
  - GASTROINTESTINAL TUBE INSERTION [None]
  - RENAL FAILURE [None]
  - RENAL FUNCTION TEST ABNORMAL [None]
  - RHABDOMYOLYSIS [None]
